FAERS Safety Report 5206320-5 (Version None)
Quarter: 2006Q4

REPORT INFORMATION
  Report Type: 
  Country: None (occurrence: None)
  Receive Date: 20061031
  Receipt Date: 20060909
  Transmission Date: 20070319
  Serious: No
  Sender: FDA-Public Use
  Company Number: 2006-BP-10686BP

PATIENT

DRUGS (1)
  1. APTIVUS/RITONAVIR CAPSULES (ALL OTHER THERAPEUTIC PRODUCTS) [Suspect]
     Indication: HIV INFECTION
     Dosage: 250 MGTPV/100MGRTV), PO
     Route: 048

REACTIONS (2)
  - HEPATITIS B [None]
  - LIVER FUNCTION TEST ABNORMAL [None]
